FAERS Safety Report 15664272 (Version 1)
Quarter: 2018Q4

REPORT INFORMATION
  Report Type: Spontaneous
  Country: US (occurrence: US)
  Receive Date: 20181127
  Receipt Date: 20181127
  Transmission Date: 20190205
  Serious: Yes (Other)
  Sender: FDA-Public Use
  Company Number: None

PATIENT
  Age: 46 Year
  Sex: Female
  Weight: 54 kg

DRUGS (2)
  1. BUPROPRION HCL XL 300 MG TABLET EXTENDED RELEASE [Suspect]
     Active Substance: BUPROPION HYDROCHLORIDE
     Indication: DEPRESSION
     Dosage: ?          QUANTITY:1 TABLET(S);?
     Dates: start: 20180814, end: 20180912
  2. BUPROPION HCL XL 150 MG TABLET EXTENDED RELEASE 24 HR [Suspect]
     Active Substance: BUPROPION HYDROCHLORIDE
     Indication: DEPRESSION
     Dosage: ?          QUANTITY:1 TABLET(S);?
     Route: 048
     Dates: start: 20180611, end: 20180813

REACTIONS (7)
  - Hyperreflexia [None]
  - Depression [None]
  - Gait disturbance [None]
  - Drug ineffective [None]
  - Tremor [None]
  - Therapeutic response decreased [None]
  - Dyskinesia [None]

NARRATIVE: CASE EVENT DATE: 20180629
